FAERS Safety Report 9803417 (Version 1)
Quarter: 2014Q1

REPORT INFORMATION
  Report Type: Spontaneous
  Country: US (occurrence: None)
  Receive Date: 20140107
  Receipt Date: 20140107
  Transmission Date: 20141002
  Serious: Yes (Hospitalization)
  Sender: FDA-Public Use
  Company Number: None

PATIENT
  Age: 66 Year
  Sex: 0
  Weight: 71.2 kg

DRUGS (1)
  1. AXITINIB [Suspect]
     Indication: RENAL CANCER
     Route: 048
     Dates: start: 20130228, end: 20130406

REACTIONS (2)
  - Blood alkaline phosphatase increased [None]
  - Liver function test abnormal [None]
